FAERS Safety Report 8932146 (Version 1)
Quarter: 2012Q4

REPORT INFORMATION
  Report Type: 
  Country: US (occurrence: US)
  Receive Date: 20121128
  Receipt Date: 20121128
  Transmission Date: 20130627
  Serious: No
  Sender: FDA-Public Use
  Company Number: US-009507513-1211USA009576

PATIENT
  Age: 59 Year
  Sex: Female

DRUGS (1)
  1. PROVENTIL [Suspect]
     Dosage: 2 DF, tid prn
     Route: 055
     Dates: start: 20120611

REACTIONS (3)
  - Drug ineffective [Not Recovered/Not Resolved]
  - Product quality issue [Unknown]
  - Inappropriate schedule of drug administration [Unknown]
